FAERS Safety Report 23775501 (Version 1)
Quarter: 2024Q2

REPORT INFORMATION
  Report Type: Spontaneous
  Country: RS (occurrence: RS)
  Receive Date: 20240423
  Receipt Date: 20240423
  Transmission Date: 20240716
  Serious: Yes (Other)
  Sender: FDA-Public Use
  Company Number: RS-BoehringerIngelheim-2024-BI-023295

PATIENT
  Age: 62 Year
  Sex: Female
  Weight: 55 kg

DRUGS (3)
  1. OFEV [Suspect]
     Active Substance: NINTEDANIB
     Indication: Lung disorder
     Dates: start: 20240206, end: 20240305
  2. IMURAN [Concomitant]
     Active Substance: AZATHIOPRINE
     Indication: Dermatomyositis
     Dates: start: 2002
  3. NIRYPAN [Concomitant]
     Indication: Product used for unknown indication

REACTIONS (3)
  - Haemorrhage subcutaneous [Recovered/Resolved]
  - Nausea [Recovered/Resolved]
  - Hypertension [Recovered/Resolved]

NARRATIVE: CASE EVENT DATE: 20240207
